FAERS Safety Report 8491506-7 (Version None)
Quarter: 2012Q3

REPORT INFORMATION
  Report Type: 
  Country: None (occurrence: None)
  Receive Date: 20120706
  Receipt Date: 20120626
  Transmission Date: 20120928
  Serious: Yes (Hospitalization, Other)
  Sender: FDA-Public Use
  Company Number: JP-JNJFOC-20120600975

PATIENT
  Age: 86 Year
  Sex: Male
  Weight: 53 kg

DRUGS (4)
  1. POLYCARBOPHIL CALCIUM [Concomitant]
     Route: 065
  2. GALANTAMINE HYDROBROMIDE [Suspect]
     Indication: DEMENTIA ALZHEIMER'S TYPE
     Route: 048
     Dates: start: 20120421, end: 20120504
  3. GALANTAMINE HYDROBROMIDE [Suspect]
     Route: 048
     Dates: start: 20120505, end: 20120527
  4. SULFAMETHOXAZOLE AND TRIMETHOPRIM [Concomitant]
     Route: 048
     Dates: start: 20120501, end: 20120527

REACTIONS (2)
  - RENAL FAILURE ACUTE [None]
  - DIARRHOEA [None]
